FAERS Safety Report 18794670 (Version 1)
Quarter: 2021Q1

REPORT INFORMATION
  Report Type: Spontaneous
  Country: NL (occurrence: NL)
  Receive Date: 20210127
  Receipt Date: 20210127
  Transmission Date: 20210419
  Serious: Yes (Hospitalization)
  Sender: FDA-Public Use
  Company Number: NL-PFIZER INC-2021054537

PATIENT
  Age: 64 Year
  Sex: Female
  Weight: 94 kg

DRUGS (12)
  1. CLOPIDOGREL [Concomitant]
     Active Substance: CLOPIDOGREL BISULFATE
  2. SALBUTAMOL [Concomitant]
     Active Substance: ALBUTEROL
  3. FLUTICASONE/VILANTEROL [Concomitant]
     Active Substance: FLUTICASONE FUROATE\VILANTEROL TRIFENATATE
  4. HYDROXYCHLOROQUINE [Concomitant]
     Active Substance: HYDROXYCHLOROQUINE
     Dosage: 200 MG
     Dates: start: 20201202
  5. PANTOPRAZOL [PANTOPRAZOLE] [Concomitant]
     Active Substance: PANTOPRAZOLE
  6. SULFASALAZINE. [Suspect]
     Active Substance: SULFASALAZINE
     Indication: SYSTEMIC LUPUS ERYTHEMATOSUS
     Dosage: 1000 MG, 2X/DAY
     Dates: start: 20201202, end: 20210103
  7. TELMISARTAN. [Concomitant]
     Active Substance: TELMISARTAN
  8. FUROSEMIDE. [Concomitant]
     Active Substance: FUROSEMIDE
  9. CALCI CHEW D3 [Concomitant]
     Active Substance: CALCIUM CARBONATE\CHOLECALCIFEROL
     Dosage: 500 MG
  10. LEVETIRACETAM. [Concomitant]
     Active Substance: LEVETIRACETAM
  11. SIMVASTATINE [Concomitant]
     Active Substance: SIMVASTATIN
  12. FLUOROMETHOLON [Concomitant]
     Active Substance: FLUOROMETHOLONE

REACTIONS (2)
  - Meningitis aseptic [Recovering/Resolving]
  - Off label use [Unknown]

NARRATIVE: CASE EVENT DATE: 20201202
